FAERS Safety Report 12833445 (Version 1)
Quarter: 2016Q4

REPORT INFORMATION
  Report Type: Spontaneous
  Country: US (occurrence: US)
  Receive Date: 20161010
  Receipt Date: 20161010
  Transmission Date: 20170207
  Serious: No
  Sender: FDA-Public Use
  Company Number: US-FRESENIUS KABI-FK201607501

PATIENT
  Age: 31 Year
  Sex: Female

DRUGS (1)
  1. DIPHENHYDRAMINE HYDROCHLORIDE INJECTION, USP [Suspect]
     Active Substance: DIPHENHYDRAMINE HYDROCHLORIDE
     Indication: AUTOIMMUNE DISORDER
     Route: 042
     Dates: start: 20161003, end: 20161003

REACTIONS (2)
  - Injury [Unknown]
  - Product contamination physical [Unknown]

NARRATIVE: CASE EVENT DATE: 20161003
